FAERS Safety Report 9424722 (Version 1)
Quarter: 2013Q3

REPORT INFORMATION
  Report Type: Spontaneous
  Country: US (occurrence: US)
  Receive Date: 20130729
  Receipt Date: 20130729
  Transmission Date: 20140515
  Serious: No
  Sender: FDA-Public Use
  Company Number: US-009507513-1306USA013875

PATIENT
  Sex: Female
  Weight: 45.81 kg

DRUGS (6)
  1. CLARITIN [Suspect]
     Indication: URTICARIA
     Dosage: UNK, UNKNOWN
     Route: 048
     Dates: start: 20130507
  2. NOVOLIN [Concomitant]
     Indication: DIABETES MELLITUS
     Dosage: UNK, UNKNOWN
  3. ADVIL [Concomitant]
     Indication: ARTHRALGIA
     Dosage: 200 MG, BID
     Dates: start: 20130501
  4. CORTISONE [Concomitant]
     Indication: URTICARIA
     Dosage: UNK, UNKNOWN
     Dates: start: 20130503
  5. BENADRYL [Concomitant]
     Indication: URTICARIA
     Dosage: UNK, UNKNOWN
     Dates: start: 20130506
  6. ZYRTEC [Concomitant]
     Indication: URTICARIA
     Dosage: UNK, UNKNOWN
     Dates: start: 20130507

REACTIONS (2)
  - Drug ineffective for unapproved indication [Unknown]
  - Off label use [Unknown]
